FAERS Safety Report 15320738 (Version 4)
Quarter: 2020Q4

REPORT INFORMATION
  Report Type: Spontaneous
  Country: AT (occurrence: AT)
  Receive Date: 20180827
  Receipt Date: 20201215
  Transmission Date: 20210113
  Serious: Yes (Death, Life-Threatening, Hospitalization, Other)
  Sender: FDA-Public Use
  Company Number: PHHY2018AT077665

PATIENT
  Age: 76 Year
  Sex: Male

DRUGS (44)
  1. VORICONAZOLE. [Suspect]
     Active Substance: VORICONAZOLE
     Indication: ANTIFUNGAL TREATMENT
     Dosage: 300 MG, BID
     Route: 065
  2. TACROLIMUS. [Suspect]
     Active Substance: TACROLIMUS
     Indication: IMMUNOSUPPRESSANT DRUG THERAPY
     Dosage: 15 MG, QD
     Route: 065
  3. PREDNISOLONE. [Suspect]
     Active Substance: PREDNISOLONE
     Indication: IMMUNOSUPPRESSANT DRUG THERAPY
     Dosage: 15 MG/DAY, 50 MG/D?0.6 MG/KG ON POSTOPERATIVE DAY FOLLOWED BY TAPERING
     Route: 065
  4. ANIDULAFUNGIN [Concomitant]
     Active Substance: ANIDULAFUNGIN
     Indication: PROPHYLAXIS
  5. MEROPENEM. [Concomitant]
     Active Substance: MEROPENEM
     Indication: PROPHYLAXIS
  6. CIPROFLOXACIN. [Concomitant]
     Active Substance: CIPROFLOXACIN
     Indication: STAPHYLOCOCCAL INFECTION
  7. PREDNISOLONE. [Suspect]
     Active Substance: PREDNISOLONE
     Dosage: FOLLOWED BY TAPERING (ON TAPERED DOSE)
     Route: 065
  8. CEFEPIME [Concomitant]
     Active Substance: CEFEPIME HYDROCHLORIDE
     Indication: STAPHYLOCOCCAL INFECTION
  9. CIPROFLOXACIN. [Concomitant]
     Active Substance: CIPROFLOXACIN
     Indication: PROPHYLAXIS
     Dosage: UNK
     Route: 065
  10. SULFAMETROLE SODIUM [Concomitant]
     Indication: ENTEROCOCCAL INFECTION
  11. PIPERACILLIN/TAZOBACTAM [Concomitant]
     Active Substance: PIPERACILLIN SODIUM\TAZOBACTAM SODIUM
     Indication: ENTEROCOCCAL INFECTION
  12. TACROLIMUS. [Suspect]
     Active Substance: TACROLIMUS
     Dosage: 50 MG, QD-0.6 MG/KG ON POSTOPERATIVE DAY FOLLOWED BY TAPERING
     Route: 065
  13. FLUCONAZOLE. [Concomitant]
     Active Substance: FLUCONAZOLE
     Indication: ANTIFUNGAL PROPHYLAXIS
     Dosage: 600 MG, QD
     Route: 051
  14. CEFEPIME [Concomitant]
     Active Substance: CEFEPIME HYDROCHLORIDE
     Indication: PROPHYLAXIS
     Dosage: UNK
     Route: 065
  15. TEICOPLANIN [Concomitant]
     Active Substance: TEICOPLANIN
     Indication: PROPHYLAXIS
     Dosage: UNK
     Route: 065
  16. LINEZOLID. [Concomitant]
     Active Substance: LINEZOLID
     Indication: ENTEROCOCCAL INFECTION
  17. AVIBACTAM SODIUM. [Concomitant]
     Active Substance: AVIBACTAM SODIUM
     Indication: PROPHYLAXIS
     Dosage: UNK
     Route: 065
  18. CEFTOLOZANE SULFATE [Concomitant]
     Active Substance: CEFTOLOZANE SULFATE
     Indication: PROPHYLAXIS
     Dosage: UNK
     Route: 065
  19. CEFTOLOZANE SULFATE [Concomitant]
     Active Substance: CEFTOLOZANE SULFATE
     Indication: ENTEROCOCCAL INFECTION
  20. PREDNISOLONE. [Suspect]
     Active Substance: PREDNISOLONE
     Dosage: 15 MG/DAY, 50 MG/D?0.6 MG/KG ON POSTOPERATIVE DAY FOLLOWED BY TAPERING
     Route: 065
  21. GENTAMICIN. [Concomitant]
     Active Substance: GENTAMICIN
     Indication: PROPHYLAXIS
     Dosage: UNK
     Route: 065
  22. LINEZOLID. [Concomitant]
     Active Substance: LINEZOLID
     Indication: STAPHYLOCOCCAL INFECTION
  23. AVIBACTAM SODIUM. [Concomitant]
     Active Substance: AVIBACTAM SODIUM
     Indication: STAPHYLOCOCCAL INFECTION
  24. SULFAMETROLE SODIUM [Concomitant]
     Indication: PROPHYLAXIS
     Dosage: UNK
     Route: 065
  25. PREDNISOLONE. [Suspect]
     Active Substance: PREDNISOLONE
     Indication: IMMUNOSUPPRESSION
     Dosage: 15 MG/DAY, 50 MG/D?0.6 MG/KG ON POSTOPERATIVE DAY FOLLOWED BY TAPERING
     Route: 065
  26. AMPHOTERICIN B. [Concomitant]
     Active Substance: AMPHOTERICIN B
     Indication: ANTIFUNGAL PROPHYLAXIS
     Dosage: 10 MG, TID (Q8H)
     Route: 055
  27. MEROPENEM. [Concomitant]
     Active Substance: MEROPENEM
     Indication: STAPHYLOCOCCAL INFECTION
     Dosage: UNK
     Route: 065
  28. GENTAMICIN. [Concomitant]
     Active Substance: GENTAMICIN
     Indication: STAPHYLOCOCCAL INFECTION
  29. LINEZOLID. [Concomitant]
     Active Substance: LINEZOLID
     Indication: PROPHYLAXIS
     Dosage: UNK
     Route: 065
  30. SULFAMETROLE SODIUM [Concomitant]
     Indication: STAPHYLOCOCCAL INFECTION
  31. PIPERACILLIN/TAZOBACTAM [Concomitant]
     Active Substance: PIPERACILLIN SODIUM\TAZOBACTAM SODIUM
     Indication: PROPHYLAXIS
     Dosage: UNK
     Route: 065
  32. ANIDULAFUNGIN [Concomitant]
     Active Substance: ANIDULAFUNGIN
     Indication: ANTIFUNGAL PROPHYLAXIS
     Dosage: 100 MG, QD
     Route: 051
  33. CIPROFLOXACIN. [Concomitant]
     Active Substance: CIPROFLOXACIN
     Indication: ENTEROCOCCAL INFECTION
  34. AVIBACTAM SODIUM. [Concomitant]
     Active Substance: AVIBACTAM SODIUM
     Indication: ENTEROCOCCAL INFECTION
  35. TACROLIMUS. [Suspect]
     Active Substance: TACROLIMUS
     Indication: IMMUNOSUPPRESSION
     Dosage: 0.1 MG/KG BODY WEIGHT
     Route: 065
  36. CEFEPIME [Concomitant]
     Active Substance: CEFEPIME HYDROCHLORIDE
     Indication: ENTEROCOCCAL INFECTION
  37. TEICOPLANIN [Concomitant]
     Active Substance: TEICOPLANIN
     Indication: STAPHYLOCOCCAL INFECTION
  38. TEICOPLANIN [Concomitant]
     Active Substance: TEICOPLANIN
     Indication: ENTEROCOCCAL INFECTION
  39. CEFTOLOZANE SULFATE [Concomitant]
     Active Substance: CEFTOLOZANE SULFATE
     Indication: STAPHYLOCOCCAL INFECTION
  40. MEROPENEM. [Concomitant]
     Active Substance: MEROPENEM
     Indication: ENTEROCOCCAL INFECTION
  41. GENTAMICIN. [Concomitant]
     Active Substance: GENTAMICIN
     Indication: ENTEROCOCCAL INFECTION
  42. FLUCONAZOLE. [Concomitant]
     Active Substance: FLUCONAZOLE
     Indication: PROPHYLAXIS
  43. FILGRASTIM [Concomitant]
     Active Substance: FILGRASTIM
     Indication: NEUTROPENIA
     Dosage: (48 MIO IU/DAY)
     Route: 058
  44. PIPERACILLIN/TAZOBACTAM [Concomitant]
     Active Substance: PIPERACILLIN SODIUM\TAZOBACTAM SODIUM
     Indication: STAPHYLOCOCCAL INFECTION

REACTIONS (6)
  - Purulent discharge [Not Recovered/Not Resolved]
  - Drug ineffective [Fatal]
  - Neutropenia [Unknown]
  - Condition aggravated [Fatal]
  - Systemic mycosis [Fatal]
  - Wound dehiscence [Not Recovered/Not Resolved]
